FAERS Safety Report 4929218-6 (Version None)
Quarter: 2006Q1

REPORT INFORMATION
  Report Type: 
  Country: None (occurrence: None)
  Receive Date: 20060228
  Receipt Date: 20060228
  Transmission Date: 20060701
  Serious: Yes (Other)
  Sender: FDA-Public Use
  Company Number: None

PATIENT
  Sex: Male
  Weight: 101.5 kg

DRUGS (1)
  1. MIRTAZAPINE [Suspect]
     Dosage: 30 MG QHS PO
     Route: 048

REACTIONS (1)
  - PANCYTOPENIA [None]
